FAERS Safety Report 4383964-4 (Version None)
Quarter: 2004Q2

REPORT INFORMATION
  Report Type: 
  Country: None (occurrence: None)
  Receive Date: 20040621
  Receipt Date: 20040609
  Transmission Date: 20050107
  Serious: Yes (Hospitalization)
  Sender: FDA-Public Use
  Company Number: DE-JNJFOC-20040201562

PATIENT
  Age: 51 Year
  Sex: Male
  Weight: 135 kg

DRUGS (2)
  1. RISPERDAL CONSTA [Suspect]
     Indication: SCHIZOPHRENIA
     Dosage: SEE IMAGE
     Route: 030
     Dates: start: 20030101, end: 20031201
  2. RISPERDAL CONSTA [Suspect]
     Indication: SCHIZOPHRENIA
     Dosage: SEE IMAGE
     Route: 030
     Dates: start: 20021212, end: 20040525

REACTIONS (4)
  - APPLICATION SITE SWELLING [None]
  - BENIGN NEOPLASM [None]
  - FAT NECROSIS [None]
  - HISTOLOGY ABNORMAL [None]
